FAERS Safety Report 9835972 (Version 1)
Quarter: 2014Q1

REPORT INFORMATION
  Report Type: Spontaneous
  Country: ES (occurrence: ES)
  Receive Date: 20140122
  Receipt Date: 20140122
  Transmission Date: 20141002
  Serious: Yes (Hospitalization)
  Sender: FDA-Public Use
  Company Number: PHHY2014ES004638

PATIENT
  Age: 63 Year
  Sex: Female

DRUGS (4)
  1. AFINITOR [Suspect]
     Indication: RENAL CELL CARCINOMA STAGE IV
     Dosage: 10 MG, QD
     Route: 048
     Dates: start: 20130403, end: 20130411
  2. DEPRAX [Concomitant]
     Indication: DEPRESSION
     Dosage: 50 MG, QD
     Route: 048
  3. LEXATIN [Concomitant]
     Indication: DEPRESSION
     Dosage: 3 MG, QID
     Route: 048
  4. OMEPRAZOL ^ACYFABRIK^ [Concomitant]
     Indication: GASTROOESOPHAGEAL REFLUX DISEASE
     Dosage: 20 MG, QD
     Route: 048

REACTIONS (7)
  - Odynophagia [Recovered/Resolved]
  - Asthenia [Recovering/Resolving]
  - Diarrhoea [Recovered/Resolved]
  - Decreased appetite [Recovering/Resolving]
  - Infection [Recovered/Resolved]
  - Pyrexia [Recovered/Resolved]
  - Mucosal inflammation [Recovered/Resolved]
